FAERS Safety Report 6204669-0 (Version None)
Quarter: 2009Q2

REPORT INFORMATION
  Report Type: 
  Country: None (occurrence: None)
  Receive Date: 20090527
  Receipt Date: 20090522
  Transmission Date: 20091009
  Serious: Yes (Death, Hospitalization)
  Sender: FDA-Public Use
  Company Number: US-WYE-H09443009

PATIENT
  Age: 79 Year
  Sex: Female

DRUGS (2)
  1. TEMSIROLIMUS [Suspect]
     Indication: ENDOMETRIAL CANCER
     Dosage: 25 MG ON DAYS 1,8,15 AND 22
     Route: 042
     Dates: start: 20090122, end: 20090430
  2. BEVACIZUMAB [Suspect]
     Indication: ENDOMETRIAL CANCER
     Dosage: 10 MG/KG ON DAYS 1 AND 15
     Route: 042
     Dates: start: 20090122, end: 20090430

REACTIONS (4)
  - CARDIAC ARREST [None]
  - CARDIAC TAMPONADE [None]
  - CEREBRAL ISCHAEMIA [None]
  - PAIN IN JAW [None]
